FAERS Safety Report 8344849-1 (Version None)
Quarter: 2012Q2

REPORT INFORMATION
  Report Type: 
  Country: None (occurrence: None)
  Receive Date: 20120508
  Receipt Date: 20120430
  Transmission Date: 20120825
  Serious: Yes (Other)
  Sender: FDA-Public Use
  Company Number: US-GLAXOSMITHKLINE-A0975735A

PATIENT
  Age: 71 Year
  Sex: Female

DRUGS (3)
  1. TOPROL-XL [Concomitant]
  2. PREDNISONE TAPER [Concomitant]
  3. PROMACTA [Suspect]
     Indication: PRODUCT USED FOR UNKNOWN INDICATION
     Dosage: 100MG PER DAY
     Route: 048
     Dates: start: 20120201

REACTIONS (3)
  - HALLUCINATION [None]
  - UNEVALUABLE EVENT [None]
  - HALLUCINATION, AUDITORY [None]
